FAERS Safety Report 5306250-4 (Version None)
Quarter: 2007Q1

REPORT INFORMATION
  Report Type: 
  Country: None (occurrence: None)
  Receive Date: 20070201
  Receipt Date: 20061204
  Transmission Date: 20070707
  Serious: No
  Sender: FDA-Public Use
  Company Number: 2006PV026335

PATIENT
  Age: 84 Year
  Sex: Female

DRUGS (3)
  1. BYETTA [Suspect]
     Indication: DIABETES MELLITUS NON-INSULIN-DEPENDENT
     Dosage: 5 MCG QD SC
     Route: 058
     Dates: start: 20061201
  2. GLYBURIDE [Concomitant]
  3. HYDROXYZINE [Concomitant]

REACTIONS (3)
  - DECREASED APPETITE [None]
  - MEDICATION ERROR [None]
  - NAUSEA [None]
